FAERS Safety Report 7877172-X (Version None)
Quarter: 2011Q4

REPORT INFORMATION
  Report Type: 
  Country: None (occurrence: None)
  Receive Date: 20111031
  Receipt Date: 20111021
  Transmission Date: 20120403
  Serious: Yes (Other)
  Sender: FDA-Public Use
  Company Number: US-BAYER-2011-058297

PATIENT
  Age: 23 Year
  Sex: Female
  Weight: 73 kg

DRUGS (1)
  1. YASMIN [Suspect]
     Indication: ACNE
     Dosage: UNK
     Dates: start: 20020101, end: 20090101

REACTIONS (9)
  - NAUSEA [None]
  - GASTROINTESTINAL DISORDER [None]
  - INJURY [None]
  - GALLBLADDER INJURY [None]
  - PAIN [None]
  - ABDOMINAL PAIN UPPER [None]
  - GASTROINTESTINAL PAIN [None]
  - CHOLELITHIASIS [None]
  - CHOLECYSTITIS [None]
